FAERS Safety Report 13565122 (Version 1)
Quarter: 2017Q2

REPORT INFORMATION
  Report Type: Spontaneous
  Country: GB (occurrence: GB)
  Receive Date: 20170519
  Receipt Date: 20170519
  Transmission Date: 20170830
  Serious: Yes (Other)
  Sender: FDA-Public Use
  Company Number: GB-SA-2017SA090694

PATIENT
  Age: 33 Year
  Sex: Female

DRUGS (5)
  1. MIRTAZAPINE. [Suspect]
     Active Substance: MIRTAZAPINE
     Indication: PROGRESSIVE MULTIFOCAL LEUKOENCEPHALOPATHY
     Route: 065
  2. RITUXIMAB [Suspect]
     Active Substance: RITUXIMAB
     Indication: IMMUNOMODULATORY THERAPY
     Dosage: FOUR WEEKLY DOSES
     Route: 065
     Dates: start: 200606
  3. RITUXIMAB [Suspect]
     Active Substance: RITUXIMAB
     Indication: IMMUNOMODULATORY THERAPY
     Dosage: TWO DOSES IN 2007
     Route: 065
     Dates: start: 2007
  4. ALEMTUZUMAB [Suspect]
     Active Substance: ALEMTUZUMAB
     Indication: IMMUNOMODULATORY THERAPY
     Route: 065
  5. ALEMTUZUMAB [Suspect]
     Active Substance: ALEMTUZUMAB
     Indication: IMMUNOMODULATORY THERAPY
     Route: 065
     Dates: start: 200706, end: 200706

REACTIONS (3)
  - Neurological symptom [Unknown]
  - Progressive multifocal leukoencephalopathy [Unknown]
  - Off label use [Unknown]
